FAERS Safety Report 9007826 (Version 1)
Quarter: 2013Q1

REPORT INFORMATION
  Report Type: Spontaneous
  Country: US (occurrence: US)
  Receive Date: 20130111
  Receipt Date: 20130111
  Transmission Date: 20140127
  Serious: Yes (Death, Hospitalization)
  Sender: FDA-Public Use
  Company Number: US-OTSUKA-US-2013-10024

PATIENT
  Age: 79 Year
  Sex: Male

DRUGS (2)
  1. SAMSCA [Suspect]
     Indication: HYPONATRAEMIA
     Dosage: UNK
  2. SAMSCA [Suspect]
     Dosage: 60 MG MILLIGRAM(S), UNK
     Route: 048

REACTIONS (3)
  - Death [Fatal]
  - Cardiac failure [Unknown]
  - Medication error [Unknown]
